FAERS Safety Report 18347192 (Version 1)
Quarter: 2020Q4

REPORT INFORMATION
  Report Type: Other
  Country: US (occurrence: US)
  Receive Date: 20201005
  Receipt Date: 20201005
  Transmission Date: 20210114
  Serious: Yes (Other)
  Sender: FDA-Public Use
  Company Number: US-ROCHE-2685226

PATIENT
  Age: 54 Year
  Sex: Female
  Weight: 59.93 kg

DRUGS (13)
  1. PROAIR HFA [Concomitant]
     Active Substance: ALBUTEROL SULFATE
     Indication: ASTHMA
     Dosage: 2 PUFFS EVERY 4 HOURS AS NEEDED
     Route: 055
  2. QVAR [Concomitant]
     Active Substance: BECLOMETHASONE DIPROPIONATE
     Indication: ASTHMA
     Route: 055
  3. NITROFURANTOIN. [Concomitant]
     Active Substance: NITROFURANTOIN
     Indication: CYSTITIS
     Route: 048
  4. VITAMIN C [Concomitant]
     Active Substance: ASCORBIC ACID
     Route: 048
  5. OCREVUS [Suspect]
     Active Substance: OCRELIZUMAB
     Indication: PRIMARY PROGRESSIVE MULTIPLE SCLEROSIS
     Dosage: MOST RECENT INFUSION ON 21/SEP/2018, 22/MAR/2019, 23/SEP/2019, 23/MAR/2020.
     Route: 042
     Dates: start: 2018
  6. OCREVUS [Suspect]
     Active Substance: OCRELIZUMAB
     Indication: RELAPSING-REMITTING MULTIPLE SCLEROSIS
  7. SHINGRIX [Suspect]
     Active Substance: RECOMBINANT VARICELLA ZOSTER VIRUS (VZV) GLYCOPROTEIN E
     Indication: ANTIVIRAL PROPHYLAXIS
     Route: 065
     Dates: start: 2018, end: 2018
  8. BACLOFEN. [Concomitant]
     Active Substance: BACLOFEN
     Route: 048
  9. MONTELUKAST [Concomitant]
     Active Substance: MONTELUKAST SODIUM
     Indication: SINUSITIS
     Route: 048
  10. SOLIFENACIN [Concomitant]
     Active Substance: SOLIFENACIN
     Indication: URINARY RETENTION
     Route: 048
     Dates: start: 202004
  11. FISH OIL [Concomitant]
     Active Substance: FISH OIL
     Route: 048
  12. GABAPENTIN. [Concomitant]
     Active Substance: GABAPENTIN
     Indication: MULTIPLE SCLEROSIS
     Route: 048
  13. GABAPENTIN. [Concomitant]
     Active Substance: GABAPENTIN
     Dosage: AT BEDTIME
     Route: 048

REACTIONS (3)
  - Sinusitis [Not Recovered/Not Resolved]
  - Multiple sclerosis relapse [Unknown]
  - Pyrexia [Recovered/Resolved]

NARRATIVE: CASE EVENT DATE: 201809
